FAERS Safety Report 11350038 (Version 1)
Quarter: 2015Q3

REPORT INFORMATION
  Report Type: Spontaneous
  Country: US (occurrence: None)
  Receive Date: 20150709
  Receipt Date: 20150709
  Transmission Date: 20151125
  Serious: Yes (Other)
  Sender: FDA-Public Use
  Company Number: PHEH2015US004887

PATIENT
  Age: 69 Year
  Sex: Male

DRUGS (12)
  1. OMEPRAZOLE. [Concomitant]
     Active Substance: OMEPRAZOLE
  2. TOPIRAMATE. [Concomitant]
     Active Substance: TOPIRAMATE
  3. TRAZODONE [Concomitant]
     Active Substance: TRAZODONE HYDROCHLORIDE
  4. SERTRALINE [Concomitant]
     Active Substance: SERTRALINE HYDROCHLORIDE
  5. NYSTATIN W/TRIAMCINOLONE ACETONIDE (NYSTATIN, TRIAMCINOLONE ACETONIDE) CREAM [Concomitant]
  6. MECLIZINE [Concomitant]
     Active Substance: MECLIZINE\MECLIZINE HYDROCHLORIDE
  7. DESONIDE (DESONIDE) CREAM [Concomitant]
  8. FIORICET (BUTALBITAL, CAFFEINE, PARACETAMOL) [Concomitant]
  9. GLEEVEC [Suspect]
     Active Substance: IMATINIB MESYLATE
     Indication: PRODUCT USED FOR UNKNOWN INDICATION
  10. BUPROPION. [Concomitant]
     Active Substance: BUPROPION
  11. BABY ASPIRIN (ACETYLSALICYLIC ACID) [Concomitant]
     Active Substance: ASPIRIN
  12. CLOTRIMAZOLE CREAM, 1% [Concomitant]

REACTIONS (3)
  - Deafness [None]
  - Fatigue [None]
  - Somnolence [None]
